FAERS Safety Report 7352934-6 (Version None)
Quarter: 2011Q1

REPORT INFORMATION
  Report Type: 
  Country: None (occurrence: None)
  Receive Date: 20110315
  Receipt Date: 20110302
  Transmission Date: 20110831
  Serious: Yes (Other)
  Sender: FDA-Public Use
  Company Number: PHHY2010JP39750

PATIENT
  Sex: Male
  Weight: 44 kg

DRUGS (4)
  1. FOLIAMIN [Concomitant]
     Indication: FOLATE DEFICIENCY
     Dosage: 15 MG
     Route: 048
  2. VOLTAREN [Suspect]
     Indication: RHEUMATOID ARTHRITIS
     Dosage: UNK
     Route: 048
  3. PREDONINE [Concomitant]
     Indication: RHEUMATOID ARTHRITIS
     Dosage: 5 MG
     Route: 048
  4. AZULFIDINE [Concomitant]
     Indication: RHEUMATOID ARTHRITIS
     Dosage: 1000 MG
     Route: 048

REACTIONS (17)
  - ILEAL OPERATION [None]
  - SURGERY [None]
  - ILEAL STENOSIS [None]
  - C-REACTIVE PROTEIN INCREASED [None]
  - ILEAL ULCER [None]
  - DIARRHOEA [None]
  - ILEAL PERFORATION [None]
  - WEIGHT DECREASED [None]
  - COLITIS ISCHAEMIC [None]
  - ABDOMINAL PAIN [None]
  - VOMITING [None]
  - DECREASED APPETITE [None]
  - HYPERTROPHY [None]
  - ABDOMINAL TENDERNESS [None]
  - PROTEIN TOTAL DECREASED [None]
  - BLOOD ALBUMIN DECREASED [None]
  - HAEMOGLOBIN DECREASED [None]
